FAERS Safety Report 22225072 (Version 1)
Quarter: 2023Q2

REPORT INFORMATION
  Report Type: Spontaneous
  Country: US (occurrence: None)
  Receive Date: 20230417
  Receipt Date: 20230417
  Transmission Date: 20230722
  Serious: Yes (unspecified)
  Sender: FDA-Public Use
  Company Number: None

PATIENT
  Age: 67 Year
  Sex: Male
  Weight: 90.72 kg

DRUGS (9)
  1. OZEMPIC [Suspect]
     Active Substance: SEMAGLUTIDE
     Indication: Type 2 diabetes mellitus
     Dosage: FREQUENCY : WEEKLY;?
     Route: 058
  2. METFORMIN [Concomitant]
     Active Substance: METFORMIN HYDROCHLORIDE
  3. NOVOLIN R [Concomitant]
     Active Substance: INSULIN HUMAN
  4. TRESIBA [Concomitant]
     Active Substance: INSULIN DEGLUDEC
  5. ATORVASTATIN [Concomitant]
     Active Substance: ATORVASTATIN
  6. AMLODIPINE [Concomitant]
     Active Substance: AMLODIPINE BESYLATE
  7. LOSARTAN [Concomitant]
     Active Substance: LOSARTAN
  8. VITAMINS [Concomitant]
     Active Substance: VITAMINS
  9. ASPIRIN [Concomitant]
     Active Substance: ASPIRIN

REACTIONS (3)
  - Device malfunction [None]
  - Incorrect dose administered by device [None]
  - Blood glucose decreased [None]

NARRATIVE: CASE EVENT DATE: 20230416
